FAERS Safety Report 5240803-7 (Version None)
Quarter: 2007Q1

REPORT INFORMATION
  Report Type: 
  Country: None (occurrence: None)
  Receive Date: 20061208
  Receipt Date: 20050708
  Transmission Date: 20070707
  Serious: Yes (Other)
  Sender: FDA-Public Use
  Company Number: 2005UW10212

PATIENT
  Age: 80 Year
  Sex: Female
  Weight: 79.378 kg

DRUGS (6)
  1. CRESTOR [Suspect]
     Indication: BLOOD CHOLESTEROL INCREASED
     Dosage: 10 MG PO
     Route: 048
     Dates: start: 20050601
  2. DYAZIDE [Concomitant]
  3. AVANDIA [Concomitant]
  4. CELEBREX [Concomitant]
  5. PREVACID [Concomitant]
  6. ENBREL [Concomitant]

REACTIONS (1)
  - VISION BLURRED [None]
